FAERS Safety Report 13707049 (Version 3)
Quarter: 2017Q3

REPORT INFORMATION
  Report Type: Spontaneous
  Country: IT (occurrence: IT)
  Receive Date: 20170630
  Receipt Date: 20170811
  Transmission Date: 20171127
  Serious: Yes (Hospitalization, Other)
  Sender: FDA-Public Use
  Company Number: IT-TEVA-781940ACC

PATIENT
  Age: 65 Year
  Sex: Female

DRUGS (11)
  1. GLIBENCLAMIDE 2.5 MG, PHENFORMIN 2.5 MG [Concomitant]
  2. AMLODIPINE [Concomitant]
     Active Substance: AMLODIPINE BESYLATE
     Dosage: 5 MG 1/4 CP DAY
     Route: 065
  3. PANTOPRAZOLE [Suspect]
     Active Substance: PANTOPRAZOLE
     Indication: PRODUCT USED FOR UNKNOWN INDICATION
     Dosage: 40 MILLIGRAM DAILY;
     Route: 048
  4. RAMIPRIL. [Concomitant]
     Active Substance: RAMIPRIL
     Route: 065
  5. METOPROLOL. [Concomitant]
     Active Substance: METOPROLOL
     Dosage: 100 MILLIGRAM DAILY;
     Route: 065
  6. GLIBENCLAMIDE 2.5 MG, PHENFORMIN 2.5 MG [Concomitant]
     Dosage: GLIBENCLAMIDE 2.5MG/PHENFORMIN 25MG THRICE A DAY
  7. FUROSEMIDE. [Suspect]
     Active Substance: FUROSEMIDE
     Indication: PRODUCT USED FOR UNKNOWN INDICATION
     Dosage: 50 MILLIGRAM DAILY;
     Route: 048
  8. EZETIMIBE 2.5 MG, SIMVASTATIN 2.5 MG [Concomitant]
     Dosage: EZETIMIBE 10MG/ SIMVASTATIN 40MG/DAY
  9. WARFARIN [Concomitant]
     Active Substance: WARFARIN
     Route: 065
  10. EZETIMIBE 2.5 MG, SIMVASTATIN 2.5 MG [Concomitant]
     Dosage: EZETIMIBE 10MG/ SIMVASTATIN 40MG/DAY
  11. DOXAZOSIN [Concomitant]
     Active Substance: DOXAZOSIN\DOXAZOSIN MESYLATE
     Dosage: 2 MILLIGRAM DAILY;
     Route: 065

REACTIONS (9)
  - Amnesia [Recovered/Resolved]
  - Hypomagnesaemia [Recovered/Resolved]
  - Hyperparathyroidism [Recovered/Resolved]
  - Epilepsy [Recovered/Resolved]
  - Tongue biting [Recovered/Resolved]
  - Vitamin D deficiency [Recovered/Resolved]
  - Blood phosphorus decreased [Unknown]
  - Hypocalcaemia [Recovered/Resolved]
  - Muscle rigidity [Recovered/Resolved]
